FAERS Safety Report 7444549-6 (Version None)
Quarter: 2011Q2

REPORT INFORMATION
  Report Type: 
  Country: None (occurrence: None)
  Receive Date: 20110427
  Receipt Date: 20110427
  Transmission Date: 20111010
  Serious: Yes (Other)
  Sender: FDA-Public Use
  Company Number: None

PATIENT
  Sex: Female
  Weight: 51.2565 kg

DRUGS (1)
  1. COSYNTROPIN [Suspect]
     Indication: BIOPSY ADRENAL GLAND
     Dosage: 250MCG (1) VEIN
     Dates: start: 20110302

REACTIONS (5)
  - DISTURBANCE IN ATTENTION [None]
  - NAUSEA [None]
  - WEIGHT DECREASED [None]
  - DIZZINESS [None]
  - PALPITATIONS [None]
